FAERS Safety Report 5800232-1 (Version None)
Quarter: 2008Q3

REPORT INFORMATION
  Report Type: 
  Country: None (occurrence: None)
  Receive Date: 20080703
  Receipt Date: 20080620
  Transmission Date: 20090109
  Serious: Yes (Other)
  Sender: FDA-Public Use
  Company Number: US-ELI_LILLY_AND_COMPANY-US200806005527

PATIENT
  Sex: Female

DRUGS (2)
  1. GEMZAR [Suspect]
     Indication: BREAST NEOPLASM
     Dosage: 1800 MG/M2, UNK
     Route: 042
     Dates: start: 20080528, end: 20080618
  2. GEMZAR [Suspect]
     Dosage: 1800 MG/M2, UNK
     Dates: start: 20080528, end: 20080618

REACTIONS (2)
  - HAEMOGLOBIN DECREASED [None]
  - HAEMOLYSIS [None]
